FAERS Safety Report 24537427 (Version 1)
Quarter: 2024Q4

REPORT INFORMATION
  Report Type: Spontaneous
  Country: ZA (occurrence: ZA)
  Receive Date: 20241022
  Receipt Date: 20241022
  Transmission Date: 20250115
  Serious: Yes (Death)
  Sender: AMGEN
  Company Number: ZA-SERVIER-S24013268

PATIENT
  Age: 71 Year
  Sex: Male

DRUGS (30)
  1. IVABRADINE HYDROCHLORIDE [Suspect]
     Active Substance: IVABRADINE HYDROCHLORIDE
     Indication: Angina pectoris
     Dosage: 10 MILLIGRAM, QD (TAKE  ONE TABLET  TWICE A  DAY)
     Route: 048
  2. ADCO NEBRAFEN [Concomitant]
     Indication: Asthma
     Dosage: UNK (AS  DIRECTED  TWICE A  DAY)
     Route: 048
  3. MAGNESIUM CHLORIDE [Concomitant]
     Active Substance: MAGNESIUM CHLORIDE
     Indication: Product used for unknown indication
     Dosage: 1 DOSAGE FORM, QD (TAKE ONE  CAPSULE  DAILY)
     Route: 048
  4. Synaleve [Concomitant]
     Indication: Osteoarthritis
     Dosage: 4 DOSAGE FORM, QD (TAKE TWO  CAPSULES  TWICE A  DAY IF  NECESSARY)
     Route: 048
  5. Synaleve [Concomitant]
     Dosage: UNK (TAKE 1-2  CAPSULES  THREE  TIMES A  DAY)
     Route: 048
  6. ALPRAZOLAM [Concomitant]
     Active Substance: ALPRAZOLAM
     Indication: Stress
     Dosage: 3 MILLIGRAM, QD (1 MG, TID 1 MG TAKE  ONE TABLET  THREE  TIMES A  DAY)
     Route: 048
  7. Spiractin [Concomitant]
     Indication: Renal impairment
     Dosage: 12.5 MILLIGRAM, QD (25 MG TAKE  HALF A  TABLET  DAILY)
     Route: 048
  8. ECOTRIN [Concomitant]
     Active Substance: ASPIRIN
     Indication: Anticoagulant therapy
     Dosage: 81 MILLIGRAM, QD (TAKE  ONE TABLET  DAILY)
     Route: 048
  9. CLOPIDOGREL BISULFATE [Concomitant]
     Active Substance: CLOPIDOGREL BISULFATE
     Indication: Anticoagulant therapy
     Dosage: 75 MILLIGRAM, QD (TAKE  ONE TABLET  DAILY)
     Route: 048
  10. ATORVASTATIN [Concomitant]
     Active Substance: ATORVASTATIN
     Indication: Blood cholesterol abnormal
     Dosage: 20 MILLIGRAM, QD (TAKE  ONE TABLET  AT NIGHT)
     Route: 048
  11. ACETYLCYSTEINE [Concomitant]
     Active Substance: ACETYLCYSTEINE
     Indication: Product used for unknown indication
     Dosage: 400 MILLIGRAM, QD (TAKE ONE  TABLET  TWICE A  DAY)
     Route: 048
  12. CALCIUM\CHOLECALCIFEROL\MAGNESIUM [Concomitant]
     Active Substance: CALCIUM\CHOLECALCIFEROL\MAGNESIUM
     Indication: Osteopenia
     Dosage: 1 DOSAGE FORM, QD
     Route: 048
  13. AZITHROMYCIN [Concomitant]
     Active Substance: AZITHROMYCIN
     Indication: Product used for unknown indication
     Dosage: 500 MILLIGRAM, QD
     Route: 048
  14. MINERALS\VITAMINS [Concomitant]
     Active Substance: MINERALS\VITAMINS
     Indication: Product used for unknown indication
     Dosage: 1 DOSAGE FORM, QD (ONE SACHET  DISSOLVED  IN WATER  DAILY)
     Route: 048
  15. MOVICOL [Concomitant]
     Active Substance: POLYETHYLENE GLYCOL 3350\POTASSIUM CHLORIDE\SODIUM BICARBONATE\SODIUM CHLORIDE
     Indication: Product used for unknown indication
     Dosage: ONE SACHET  DISSOLVED  IN WATER  DAILY IF  NECESSARY
     Route: 048
  16. ESOMEPRAZOLE [Concomitant]
     Active Substance: ESOMEPRAZOLE
     Indication: Dyspepsia
     Dosage: 80 MILLIGRAM, QD
     Route: 048
  17. AMITRIPTYLINE [Concomitant]
     Active Substance: AMITRIPTYLINE
     Indication: Migraine
     Dosage: 10 MILLIGRAM, QD, TAKE  ONE TABLET  AT NIGHT
     Route: 048
  18. SULPIRIDE [Concomitant]
     Active Substance: SULPIRIDE
     Indication: Gastric ulcer
     Dosage: 100 MILLIGRAM, QD (TAKE  ONE  CAPSULE  TWICE A  DAY)
     Route: 048
  19. FLUTICASONE PROPIONATE\SALMETEROL XINAFOATE [Concomitant]
     Active Substance: FLUTICASONE PROPIONATE\SALMETEROL XINAFOATE
     Indication: Bronchospasm
     Dosage: 4 DOSAGE FORM, QD (50/250 MCG  TAKE TWO  PUFFS  TWICE A  DAY)
     Route: 055
  20. PREDNISONE [Concomitant]
     Active Substance: PREDNISONE
     Indication: Product used for unknown indication
     Dosage: 25 MILLIGRAM, QD, 5 MG TAKE  FIVE  TABLETS  DAILY FOR  SEVEN DAYS
     Route: 048
  21. ZITHROMAX [Concomitant]
     Active Substance: AZITHROMYCIN DIHYDRATE
     Indication: Product used for unknown indication
     Dosage: 500 MILLIGRAM, QD (TAKE ONE  TABLET  DAILY FOR  THREE DAYS)
     Route: 048
  22. NALOXONE HYDROCHLORIDE\OXYCODONE HYDROCHLORIDE [Concomitant]
     Active Substance: NALOXONE HYDROCHLORIDE\OXYCODONE HYDROCHLORIDE
     Indication: Surgery
     Dosage: 1 DOSAGE FORM, QD
     Route: 048
  23. ACETYLCYSTEINE [Concomitant]
     Active Substance: ACETYLCYSTEINE
     Indication: Product used for unknown indication
     Dosage: 600 MILLIGRAM, QD (TAKE ONE  DISSOLVED IN WATER DAILY)
     Route: 048
  24. TRELEGY ELLIPTA [Concomitant]
     Active Substance: FLUTICASONE FUROATE\UMECLIDINIUM BROMIDE\VILANTEROL TRIFENATATE
     Indication: Asthma
     Dosage: 1 DOSAGE FORM, QD (92/55 MCG  ONE PUFF  DAILY)
     Route: 055
  25. Betadexamine [Concomitant]
     Indication: Product used for unknown indication
     Dosage: 2 DOSAGE FORM, QD (TAKE ONE  TABLET  TWICE A  DAY)
     Route: 048
  26. FLUTICASONE FUROATE [Concomitant]
     Active Substance: FLUTICASONE FUROATE
     Indication: Hypersensitivity
     Dosage: 4 DOSAGE FORM, QD (27.5 MCG  TWO  SPRAYS  INTO EACH  NOSTRIL  TWICE A  DAY)
     Route: 045
  27. ZOPICLONE [Concomitant]
     Active Substance: ZOPICLONE
     Indication: Insomnia
     Dosage: 7.5 MG, QD TAKE ONE  TABLET AT  NIGHT
     Route: 048
  28. ACETYLCYSTEINE [Concomitant]
     Active Substance: ACETYLCYSTEINE
     Indication: Product used for unknown indication
     Dosage: 200 MILLIGRAM (UNKNOWN)
     Route: 048
  29. ILIADIN [Concomitant]
     Indication: Product used for unknown indication
     Dosage: 0.5 MILLIGRAM UNKNOWN
     Route: 045
  30. CIPROFLOXACIN HYDROCHLORIDE [Concomitant]
     Active Substance: CIPROFLOXACIN HYDROCHLORIDE
     Indication: Product used for unknown indication
     Dosage: 1000 MILLIGRAM, QD
     Route: 048

REACTIONS (1)
  - Pneumonia [Fatal]
